FAERS Safety Report 9053497 (Version 1)
Quarter: 2013Q1

REPORT INFORMATION
  Report Type: Spontaneous
  Country: US (occurrence: None)
  Receive Date: 20130117
  Receipt Date: 20130117
  Transmission Date: 20140127
  Serious: Yes (Hospitalization)
  Sender: FDA-Public Use
  Company Number: VAL_00837_2012

PATIENT
  Sex: Female
  Weight: 80.02 kg

DRUGS (12)
  1. METOPROLOL TARTRATE 100 MG [Suspect]
     Indication: HYPERTENSION
     Route: 048
  2. METOPROLOL TARTRATE 100 MG [Suspect]
     Indication: ARTERIOSCLEROSIS CORONARY ARTERY
     Route: 048
  3. DIOVAN [Concomitant]
  4. PLAVIX [Concomitant]
  5. FUROSEMIDE [Concomitant]
  6. SIMVASTATIN [Concomitant]
  7. LISINOPRIL [Concomitant]
  8. HUMIULIN R [Concomitant]
  9. HUMULIN N [Concomitant]
  10. LEVOTHYROXINE [Concomitant]
  11. NITROGLYCERIN [Concomitant]
  12. NITROSTAT [Concomitant]

REACTIONS (4)
  - Drug ineffective [None]
  - Product quality issue [None]
  - Local swelling [None]
  - Angina pectoris [None]
